FAERS Safety Report 9165727 (Version 2)
Quarter: 2013Q2

REPORT INFORMATION
  Report Type: Spontaneous
  Country: US (occurrence: None)
  Receive Date: 20130228
  Receipt Date: 20130411
  Transmission Date: 20140414
  Serious: Yes (Hospitalization)
  Sender: FDA-Public Use
  Company Number: JPI-P-029938

PATIENT
  Age: 32 Year
  Sex: Female

DRUGS (2)
  1. XYREM (500 MILLIGRAM/MILLILITERS, SOLUTION) (SODIUM OXYBATE) [Suspect]
     Indication: NARCOLEPSY
     Dosage: 4.5 GM (2.25 G, 2 IN 1 D), ORAL
     Route: 048
     Dates: start: 20120801, end: 2012
  2. ANTIDEPRESSANT [Suspect]
     Indication: DEPRESSION
     Dates: start: 2002

REACTIONS (2)
  - Bipolar disorder [None]
  - Mania [None]
